FAERS Safety Report 23015366 (Version 1)
Quarter: 2023Q4

REPORT INFORMATION
  Report Type: Spontaneous
  Country: US (occurrence: US)
  Receive Date: 20231002
  Receipt Date: 20231002
  Transmission Date: 20240110
  Serious: Yes (Other)
  Sender: FDA-Public Use
  Company Number: US-TAKEDA-2023TUS093770

PATIENT
  Age: 58 Year
  Sex: Female

DRUGS (6)
  1. HUMAN IMMUNOGLOBULIN G [Suspect]
     Active Substance: HUMAN IMMUNOGLOBULIN G
     Indication: Lichen myxoedematosus
     Dosage: UNK
     Route: 042
     Dates: start: 2014, end: 2016
  2. CUVITRU [Suspect]
     Active Substance: HUMAN IMMUNOGLOBULIN G
     Indication: Lichen myxoedematosus
     Dosage: UNK
     Route: 058
  3. BORTEZOMIB [Suspect]
     Active Substance: BORTEZOMIB
     Indication: Lichen myxoedematosus
     Dosage: UNK
     Route: 065
  4. PLAQUENIL [Concomitant]
     Active Substance: HYDROXYCHLOROQUINE SULFATE
     Dosage: UNK
     Route: 065
  5. PREDNISONE [Concomitant]
     Active Substance: PREDNISONE
     Dosage: UNK
     Route: 065
  6. DEXAMETHASONE [Concomitant]
     Active Substance: DEXAMETHASONE
     Dosage: UNK
     Route: 065
     Dates: start: 2019

REACTIONS (3)
  - Neuropathy peripheral [Unknown]
  - Migraine [Unknown]
  - Off label use [Unknown]
